FAERS Safety Report 21298361 (Version 2)
Quarter: 2022Q3

REPORT INFORMATION
  Report Type: Spontaneous
  Country: US (occurrence: US)
  Receive Date: 20220906
  Receipt Date: 20220908
  Transmission Date: 20221026
  Serious: No
  Sender: FDA-Public Use
  Company Number: US-ELI_LILLY_AND_COMPANY-US202208015572

PATIENT
  Sex: Female
  Weight: 54.422 kg

DRUGS (4)
  1. TADALAFIL [Suspect]
     Active Substance: TADALAFIL
     Indication: Pulmonary arterial hypertension
     Dosage: UNK UNK, UNKNOWN
     Route: 065
  2. TADALAFIL [Suspect]
     Active Substance: TADALAFIL
     Dosage: 1 DOSAGE FORM, DAILY
     Route: 065
     Dates: start: 20220815
  3. TYVASO [Suspect]
     Active Substance: TREPROSTINIL
     Indication: Pulmonary arterial hypertension
     Dosage: UNK UNK, QID (12 BREATHS)
     Route: 055
     Dates: start: 20220310
  4. AMBRISENTAN [Concomitant]
     Active Substance: AMBRISENTAN
     Indication: Product used for unknown indication

REACTIONS (2)
  - Hypoacusis [Recovering/Resolving]
  - Headache [Recovered/Resolved]
